FAERS Safety Report 5829763-5 (Version None)
Quarter: 2008Q3

REPORT INFORMATION
  Report Type: 
  Country: None (occurrence: None)
  Receive Date: 20080801
  Receipt Date: 20080306
  Transmission Date: 20090109
  Serious: No
  Sender: FDA-Public Use
  Company Number: US-BAYER-200811091BCC

PATIENT
  Age: 27 Year
  Sex: Female
  Weight: 75 kg

DRUGS (2)
  1. ALEVE COLD AND SINUS [Suspect]
     Indication: SINUS HEADACHE
     Route: 048
     Dates: start: 20080305
  2. ZOLOFT [Concomitant]

REACTIONS (1)
  - NO ADVERSE EVENT [None]
